FAERS Safety Report 8579202-9 (Version None)
Quarter: 2012Q3

REPORT INFORMATION
  Report Type: 
  Country: None (occurrence: None)
  Receive Date: 20120730
  Receipt Date: 20120730
  Transmission Date: 20120928
  Serious: Yes (Other)
  Sender: FDA-Public Use
  Company Number: None

PATIENT
  Age: 44 Year
  Sex: Female
  Weight: 95.709 kg

DRUGS (1)
  1. METOPROLOL SUCCINATE [Suspect]
     Indication: VENTRICULAR TACHYCARDIA
     Dosage: 1 TABLET EVERY MORNING PO; 1/2 TABLET EVERY EVENING PO
     Route: 048
     Dates: start: 20120723, end: 20120728

REACTIONS (11)
  - CHEST PAIN [None]
  - PRODUCT SUBSTITUTION ISSUE [None]
  - PRODUCT QUALITY ISSUE [None]
  - FEELING ABNORMAL [None]
  - DYSPEPSIA [None]
  - PAIN [None]
  - APHAGIA [None]
  - PRODUCT SOLUBILITY ABNORMAL [None]
  - NAUSEA [None]
  - TREMOR [None]
  - ABDOMINAL DISTENSION [None]
